FAERS Safety Report 15988537 (Version 1)
Quarter: 2019Q1

REPORT INFORMATION
  Report Type: Report from Study
  Country: US (occurrence: US)
  Receive Date: 20190221
  Receipt Date: 20190221
  Transmission Date: 20190418
  Serious: Yes (Hospitalization, Other)
  Sender: FDA-Public Use
  Company Number: US-ROCHE-2266427

PATIENT
  Age: 77 Year
  Sex: Male
  Weight: 74.3 kg

DRUGS (3)
  1. ATEZOLIZUMAB. [Suspect]
     Active Substance: ATEZOLIZUMAB
     Indication: ADENOCARCINOMA OF COLON
     Dosage: DATE OF MOST RECENT DOSE: 26/JUN/2018 (14 DAYS CYCLE).
     Route: 042
     Dates: start: 20180320
  2. ASPIRIN. [Concomitant]
     Active Substance: ASPIRIN
     Indication: ADENOCARCINOMA OF COLON
     Route: 065
  3. ELIQUIS [Concomitant]
     Active Substance: APIXABAN
     Indication: ADENOCARCINOMA OF COLON
     Route: 065

REACTIONS (4)
  - Upper gastrointestinal haemorrhage [Recovered/Resolved]
  - Dizziness [Recovered/Resolved]
  - Dyspnoea [Recovered/Resolved]
  - Hyponatraemia [Recovered/Resolved]

NARRATIVE: CASE EVENT DATE: 20180710
